FAERS Safety Report 19845562 (Version 6)
Quarter: 2022Q2

REPORT INFORMATION
  Report Type: Spontaneous
  Country: US (occurrence: US)
  Receive Date: 20210916
  Receipt Date: 20220411
  Transmission Date: 20220720
  Serious: Yes (Hospitalization, Other)
  Sender: FDA-Public Use
  Company Number: US-PFIZER INC-2021178659

PATIENT
  Age: 63 Year
  Sex: Female

DRUGS (7)
  1. XELJANZ XR [Suspect]
     Active Substance: TOFACITINIB CITRATE
     Indication: Dry eye
     Dosage: 11 MG
     Dates: start: 20180721
  2. XELJANZ XR [Suspect]
     Active Substance: TOFACITINIB CITRATE
     Indication: Sjogren^s syndrome
     Dosage: 11 MG
     Dates: start: 20210208, end: 202102
  3. XELJANZ XR [Suspect]
     Active Substance: TOFACITINIB CITRATE
     Dosage: 11 MG
     Dates: start: 20210212, end: 202102
  4. XELJANZ XR [Suspect]
     Active Substance: TOFACITINIB CITRATE
     Dosage: 11 MG
     Dates: start: 20210217, end: 2021
  5. XELJANZ XR [Suspect]
     Active Substance: TOFACITINIB CITRATE
     Dosage: 11 MG
     Dates: start: 20210601, end: 2021
  6. XELJANZ XR [Suspect]
     Active Substance: TOFACITINIB CITRATE
     Dosage: 11 MG
     Dates: start: 20210715
  7. COVID-19 VACCINE [Concomitant]
     Dosage: DOSE NUMBER UNKNOWN (BOOSTER), SINGLE

REACTIONS (16)
  - Peripheral swelling [Unknown]
  - Blister [Unknown]
  - Systemic lupus erythematosus [Unknown]
  - Condition aggravated [Unknown]
  - Sensitivity to weather change [Unknown]
  - Illness [Unknown]
  - Arthropod bite [Unknown]
  - Laryngitis [Unknown]
  - Hepatic mass [Unknown]
  - Rash [Unknown]
  - Therapeutic response unexpected [Unknown]
  - Localised infection [Unknown]
  - Sinusitis [Unknown]
  - Off label use [Unknown]
  - Drug effective for unapproved indication [Unknown]
  - Sinus disorder [Unknown]

NARRATIVE: CASE EVENT DATE: 20180721
